FAERS Safety Report 10201202 (Version 2)
Quarter: 2014Q2

REPORT INFORMATION
  Report Type: Spontaneous
  Country: US (occurrence: US)
  Receive Date: 20140528
  Receipt Date: 20140528
  Transmission Date: 20141212
  Serious: Yes (Death, Hospitalization, Disabling, Other)
  Sender: FDA-Public Use
  Company Number: US-009507513-0804USA01343

PATIENT
  Sex: Female
  Weight: 54.89 kg

DRUGS (7)
  1. FOSAMAX [Suspect]
     Indication: OSTEOPOROSIS
     Dosage: 10 MG, QD
     Route: 048
     Dates: start: 19960222, end: 20060406
  2. FOSAMAX [Suspect]
     Dosage: 10-70
     Route: 048
     Dates: start: 20000525, end: 20060326
  3. FOSAMAX [Suspect]
     Dosage: 70 MG, QW
     Route: 048
     Dates: start: 20041122
  4. MK-2933 [Concomitant]
     Indication: HYPERTENSION
     Dates: start: 198903
  5. SYNTHROID [Concomitant]
     Indication: HYPOTHYROIDISM
     Dates: start: 1964, end: 20041030
  6. MK-0152 [Concomitant]
     Indication: HYPERTENSION
     Dates: start: 1999, end: 200403
  7. ESTROGENS (UNSPECIFIED) [Concomitant]
     Dates: start: 199502, end: 2002

REACTIONS (31)
  - Death [Fatal]
  - Carpal tunnel syndrome [Unknown]
  - Adverse event [Unknown]
  - Chest pain [Unknown]
  - Osteomyelitis [Unknown]
  - Osteonecrosis of jaw [Not Recovered/Not Resolved]
  - Cervical polyp [Unknown]
  - Arthritis [Unknown]
  - Nodal osteoarthritis [Unknown]
  - Diverticulum [Unknown]
  - Large intestine polyp [Unknown]
  - Haemorrhoids [Unknown]
  - Carpal tunnel syndrome [Unknown]
  - Impaired healing [Unknown]
  - Overdose [Unknown]
  - Contusion [Unknown]
  - Angina pectoris [Not Recovered/Not Resolved]
  - Cardiac murmur [Not Recovered/Not Resolved]
  - Hepatitis [Unknown]
  - Thyroid disorder [Unknown]
  - Sinus disorder [Unknown]
  - Bone lesion [Unknown]
  - Tooth disorder [Unknown]
  - Spondylitis [Unknown]
  - Oral disorder [Unknown]
  - Ulcer [Unknown]
  - Tooth infection [Unknown]
  - Dental caries [Unknown]
  - Edentulous [Unknown]
  - Somnolence [Not Recovered/Not Resolved]
  - Overdose [Unknown]
